FAERS Safety Report 20866718 (Version 1)
Quarter: 2022Q2

REPORT INFORMATION
  Report Type: Spontaneous
  Country: KP (occurrence: KR)
  Receive Date: 20220524
  Receipt Date: 20220524
  Transmission Date: 20220721
  Serious: Yes (Other)
  Sender: FDA-Public Use
  Company Number: KP-JUBILANT CADISTA PHARMACEUTICALS-2022JUB00141

PATIENT
  Age: 73 Year
  Sex: Male
  Weight: 44 kg

DRUGS (2)
  1. VALSARTAN [Suspect]
     Active Substance: VALSARTAN
     Indication: Hypertension
     Dosage: 160 MG, 1X/DAY
     Route: 065
  2. IRBESARTAN [Suspect]
     Active Substance: IRBESARTAN
     Indication: Hypertension
     Dosage: 20 MG, 1X/DAY
     Route: 065

REACTIONS (1)
  - Sprue-like enteropathy [Recovering/Resolving]
